FAERS Safety Report 12546377 (Version 2)
Quarter: 2016Q3

REPORT INFORMATION
  Report Type: Report from Study
  Country: US (occurrence: US)
  Receive Date: 20160711
  Receipt Date: 20160812
  Transmission Date: 20161109
  Serious: Yes (Hospitalization, Other)
  Sender: FDA-Public Use
  Company Number: US-ABBVIE-16K-163-1672151-00

PATIENT
  Age: 47 Year
  Sex: Male
  Weight: 149.82 kg

DRUGS (3)
  1. HUMIRA [Suspect]
     Active Substance: ADALIMUMAB
     Indication: RHEUMATOID ARTHRITIS
     Route: 058
     Dates: start: 201410, end: 201512
  2. HUMIRA [Suspect]
     Active Substance: ADALIMUMAB
     Route: 058
     Dates: start: 201607
  3. VANCOMYCIN [Suspect]
     Active Substance: VANCOMYCIN
     Indication: PRODUCT USED FOR UNKNOWN INDICATION
     Route: 042
     Dates: start: 2015

REACTIONS (15)
  - Abscess [Recovered/Resolved]
  - Abscess [Recovered/Resolved]
  - Skin warm [Recovered/Resolved]
  - Staphylococcal infection [Recovered/Resolved]
  - Staphylococcal infection [Recovered/Resolved]
  - Peripheral swelling [Recovered/Resolved]
  - Pruritus [Unknown]
  - Burning sensation [Unknown]
  - Peripheral swelling [Recovered/Resolved]
  - Lymphoedema [Not Recovered/Not Resolved]
  - Skin warm [Recovered/Resolved]
  - Staphylococcal infection [Recovered/Resolved]
  - Abscess [Recovered/Resolved]
  - Skin warm [Recovered/Resolved]
  - Peripheral swelling [Recovered/Resolved]

NARRATIVE: CASE EVENT DATE: 201410
